FAERS Safety Report 5749409-4 (Version None)
Quarter: 2008Q2

REPORT INFORMATION
  Report Type: 
  Country: None (occurrence: None)
  Receive Date: 20080527
  Receipt Date: 20080519
  Transmission Date: 20081010
  Serious: Yes (Other)
  Sender: FDA-Public Use
  Company Number: US-AVENTIS-200718341US

PATIENT
  Sex: Female

DRUGS (16)
  1. KETEK [Suspect]
     Route: 048
     Dates: start: 20041104, end: 20041105
  2. ASPIRIN [Concomitant]
     Dosage: DOSE: UNK
  3. SIMILASAN [Concomitant]
     Dosage: DOSE: EYE DROPS
  4. MENEST [Concomitant]
     Dosage: DOSE: UNK
  5. CALCIUM [Concomitant]
     Dosage: DOSE: UNK
  6. COD LIVER OIL [Concomitant]
     Dosage: DOSE: UNK
  7. GLUCOPHAGE XR [Concomitant]
     Dosage: DOSE: 500 (2 QD AT SUPPER]
     Dates: end: 20041115
  8. GLUCOPHAGE XR [Concomitant]
     Dates: start: 20041216
  9. MULTI-VITAMINS [Concomitant]
     Dosage: DOSE: UNK
  10. VITAMIN E [Concomitant]
     Dosage: DOSE: UNK
  11. LECITHIN [Concomitant]
     Dosage: DOSE: UNK
  12. TOPROL-XL [Concomitant]
     Dosage: DOSE: UNK
  13. TOPROL-XL [Concomitant]
     Dosage: DOSE: 25MG BID
     Dates: start: 20040101
  14. DIOVAN HCT [Concomitant]
     Dosage: DOSE: 80/12.5
     Dates: end: 20041115
  15. BENICAR [Concomitant]
     Dosage: DOSE: 40/25
     Dates: start: 20041201, end: 20050101
  16. BENICAR [Concomitant]
     Dosage: DOSE: UNK
     Dates: start: 20050201

REACTIONS (6)
  - BLOOD CREATININE INCREASED [None]
  - BLOOD UREA INCREASED [None]
  - HYPERSENSITIVITY [None]
  - INJURY [None]
  - RASH [None]
  - RENAL FAILURE ACUTE [None]
